FAERS Safety Report 12410043 (Version 2)
Quarter: 2016Q2

REPORT INFORMATION
  Report Type: Spontaneous
  Country: US (occurrence: US)
  Receive Date: 20160527
  Receipt Date: 20160615
  Transmission Date: 20160815
  Serious: Yes (Hospitalization, Other)
  Sender: FDA-Public Use
  Company Number: US-AMGEN-USASP2016053336

PATIENT
  Age: 61 Year
  Sex: Male

DRUGS (36)
  1. PROCRIT [Suspect]
     Active Substance: ERYTHROPOIETIN
     Dosage: 20000 UNK, TWICE/MONTH
     Route: 058
     Dates: start: 20150206, end: 20151203
  2. ACTOS [Concomitant]
     Active Substance: PIOGLITAZONE HYDROCHLORIDE
     Dosage: TAKE 1 TABLET ONCE A DAY
     Route: 048
  3. LANTUS [Concomitant]
     Active Substance: INSULIN GLARGINE
     Dosage: 50 UNIT, AS DIRECTED
     Route: 058
  4. NOVOLOG [Concomitant]
     Active Substance: INSULIN ASPART
     Dosage: 10 UNIT, AS DIRECTED
     Route: 058
  5. OMEPRAZOLE. [Concomitant]
     Active Substance: OMEPRAZOLE
     Dosage: 20.6 MG ONCE A DAY
     Route: 048
  6. STRATTERA [Concomitant]
     Active Substance: ATOMOXETINE HYDROCHLORIDE
     Dosage: 40 MG, 1 CAPSULE EVERY NIGHT/ BEDTIME
     Route: 048
  7. PROCRIT [Suspect]
     Active Substance: ERYTHROPOIETIN
     Indication: NEPHROGENIC ANAEMIA
     Dosage: UNK
     Route: 065
     Dates: start: 20080812
  8. PROCRIT [Suspect]
     Active Substance: ERYTHROPOIETIN
     Dosage: 5500 UNK, TWICE/MONTH
     Route: 058
     Dates: start: 20120911, end: 20141118
  9. COLACE [Concomitant]
     Active Substance: DOCUSATE SODIUM
     Dosage: 1 CAPSULE THREE TIMES A DAY
     Route: 048
  10. LASIX [Concomitant]
     Active Substance: FUROSEMIDE
     Dosage: 1 TABLET ONCE A DAY
     Route: 048
     Dates: start: 20131024
  11. PROCRIT [Suspect]
     Active Substance: ERYTHROPOIETIN
     Dosage: UNK
     Route: 065
  12. LISINOPRIL. [Concomitant]
     Active Substance: LISINOPRIL
     Dosage: 40 MG, 1 TABLET ONCE A DAY
     Route: 048
  13. PRAVASTATIN [Concomitant]
     Active Substance: PRAVASTATIN\PRAVASTATIN SODIUM
     Dosage: 1 TABLET ONCE A DAY
     Route: 048
  14. PROCRIT [Suspect]
     Active Substance: ERYTHROPOIETIN
     Dosage: UNK
     Route: 065
  15. PROCRIT [Suspect]
     Active Substance: ERYTHROPOIETIN
     Dosage: 20000 UNK, EVERY WEEK
     Route: 058
     Dates: start: 20151203, end: 20160223
  16. PROCRIT [Suspect]
     Active Substance: ERYTHROPOIETIN
     Dosage: UNK
     Route: 065
  17. AMBIEN [Concomitant]
     Active Substance: ZOLPIDEM TARTRATE
     Dosage: 1/2 TABLET AT AT BEDTIME AS NEEDED
     Route: 048
  18. FERROUS SULFATE. [Concomitant]
     Active Substance: FERROUS SULFATE
     Dosage: 1 TABLET TWICE A DAY
  19. MELATONIN [Concomitant]
     Active Substance: MELATONIN
     Dosage: 6 MG AT BEDTIME
     Route: 048
  20. NORVASC [Concomitant]
     Active Substance: AMLODIPINE BESYLATE
     Dosage: 1 TABLET ONCE A DAY
     Route: 048
  21. PROCRIT [Suspect]
     Active Substance: ERYTHROPOIETIN
     Dosage: UNK
     Route: 065
  22. AMITRIPTYLINE [Concomitant]
     Active Substance: AMITRIPTYLINE
     Dosage: 1 TABLET ONCE A DAY
     Route: 048
  23. DEXILANT [Concomitant]
     Active Substance: DEXLANSOPRAZOLE
     Dosage: 1 CAPSULE ONCE A DAY
     Route: 048
  24. LANTUS [Concomitant]
     Active Substance: INSULIN GLARGINE
     Dosage: 40 UNIT, ONCE A DAY
     Route: 058
  25. MIRALAX [Concomitant]
     Active Substance: POLYETHYLENE GLYCOL 3350
     Dosage: 17 G, ONCE A DAY
     Route: 048
  26. AMLODIPINE [Concomitant]
     Active Substance: AMLODIPINE BESYLATE
     Dosage: 1 TABLET EVERY NIGHT AS DIRECTED
     Route: 048
  27. JUVEN [Concomitant]
     Active Substance: .BETA.-HYDROXYISOVALERIC ACID\ARGININE\GLUTAMINE
     Dosage: 1 PACKET TWICE A DAY
     Route: 048
  28. STRATTERA [Concomitant]
     Active Substance: ATOMOXETINE HYDROCHLORIDE
     Indication: ATTENTION DEFICIT/HYPERACTIVITY DISORDER
     Dosage: 60 MG, 1 CAPSULE ONCE A DAY
     Route: 048
  29. PROCRIT [Suspect]
     Active Substance: ERYTHROPOIETIN
     Dosage: 30,000 UNK, EVERY WEEK
     Route: 058
     Dates: start: 20160303, end: 20160414
  30. TYLENOL [Concomitant]
     Active Substance: ACETAMINOPHEN
     Dosage: 2 TABLET ONCE A DAY
     Route: 048
  31. VITAMIN C [Concomitant]
     Active Substance: ASCORBIC ACID
     Dosage: 1 CAPSULE TWICE A DAY
     Route: 048
  32. ATENOLOL. [Concomitant]
     Active Substance: ATENOLOL
     Dosage: 1 TABLET ONCE A DAY
     Route: 048
  33. CLONIDINE HCL [Concomitant]
     Active Substance: CLONIDINE HYDROCHLORIDE
     Dosage: 1 TABLET EVERY EIGHT HOURS
     Route: 048
  34. GLIPIZIDE. [Concomitant]
     Active Substance: GLIPIZIDE
     Dosage: 1 TABLET ONCE A DAY
     Route: 048
  35. LISINOPRIL. [Concomitant]
     Active Substance: LISINOPRIL
     Dosage: 20 MG, 1 TABLET ONCE A DAY
     Route: 048
  36. SIMVASTATIN. [Concomitant]
     Active Substance: SIMVASTATIN
     Dosage: 1 TABLET AT BEDTIME
     Route: 048

REACTIONS (14)
  - Loss of consciousness [Unknown]
  - Hyperkalaemia [Unknown]
  - Thrombocytopenia [Unknown]
  - Foot amputation [Unknown]
  - Hyperphosphataemia [Unknown]
  - Skin ulcer [Unknown]
  - Hyperparathyroidism secondary [Unknown]
  - Marrow hyperplasia [Unknown]
  - Hypoglycaemic encephalopathy [Unknown]
  - Anaemia [Not Recovered/Not Resolved]
  - Drug effect decreased [Unknown]
  - Laceration [Unknown]
  - Bone marrow failure [Unknown]
  - Urinary tract infection [Unknown]

NARRATIVE: CASE EVENT DATE: 201102
